FAERS Safety Report 4461222-7 (Version None)
Quarter: 2004Q3

REPORT INFORMATION
  Report Type: 
  Country: None (occurrence: None)
  Receive Date: 20040928
  Receipt Date: 20040825
  Transmission Date: 20050211
  Serious: Yes (Death)
  Sender: FDA-Public Use
  Company Number: JP-JNJFOC-20040907115

PATIENT
  Age: 70 Year
  Sex: Male

DRUGS (3)
  1. ITRIZOLE [Suspect]
     Indication: PNEUMONIA ASPERGILLUS
     Route: 049
  2. MICAFUNGIN SODIUM [Concomitant]
     Indication: PNEUMONIA ASPERGILLUS
  3. DIGITALIS [Concomitant]

REACTIONS (1)
  - OEDEMA PERIPHERAL [None]
